FAERS Safety Report 10034659 (Version 1)
Quarter: 2014Q1

REPORT INFORMATION
  Report Type: Report from Study
  Country: US (occurrence: US)
  Receive Date: 20140325
  Receipt Date: 20140325
  Transmission Date: 20141002
  Serious: Yes (Hospitalization, Other)
  Sender: FDA-Public Use
  Company Number: US-ABBVIE-14P-163-1213978-00

PATIENT
  Sex: Male
  Weight: 130.75 kg

DRUGS (16)
  1. SYNTHROID [Suspect]
     Indication: HYPOTHYROIDISM
     Route: 048
     Dates: start: 2004
  2. CELEBREX [Concomitant]
     Indication: PAIN
  3. GLUCOTROL [Concomitant]
     Indication: DIABETES MELLITUS
  4. ALLER TEC [Concomitant]
     Indication: HYPERSENSITIVITY
  5. ATENOLOL [Concomitant]
     Indication: HYPERTENSION
  6. LASIX [Concomitant]
     Indication: HYPERTENSION
  7. ACCUPRIL [Concomitant]
     Indication: HYPERTENSION
  8. ASPIRIN [Concomitant]
     Indication: CARDIOVASCULAR EVENT PROPHYLAXIS
  9. ALLOPURINOL [Concomitant]
     Indication: GOUT
  10. KCL [Concomitant]
     Indication: MINERAL SUPPLEMENTATION
  11. LIPITOR [Concomitant]
     Indication: BLOOD CHOLESTEROL INCREASED
  12. ZETIA [Concomitant]
     Indication: BLOOD CHOLESTEROL INCREASED
  13. LANTUS [Concomitant]
     Indication: DIABETES MELLITUS
  14. VITAMIN C [Concomitant]
     Indication: VITAMIN SUPPLEMENTATION
  15. CENTRUM [Concomitant]
     Indication: VITAMIN SUPPLEMENTATION
  16. AMBIEN [Concomitant]
     Indication: INSOMNIA

REACTIONS (11)
  - Bladder cancer [Not Recovered/Not Resolved]
  - Loss of consciousness [Recovered/Resolved]
  - Dehydration [Recovered/Resolved]
  - Urinary tract infection [Recovered/Resolved]
  - Malignant urinary tract neoplasm [Not Recovered/Not Resolved]
  - Expired drug administered [Recovered/Resolved]
  - Nausea [Not Recovered/Not Resolved]
  - Surgical failure [Not Recovered/Not Resolved]
  - Fatigue [Not Recovered/Not Resolved]
  - Dehydration [Recovered/Resolved]
  - Neoplasm [Not Recovered/Not Resolved]
